FAERS Safety Report 13389024 (Version 2)
Quarter: 2017Q2

REPORT INFORMATION
  Report Type: Spontaneous
  Country: BR (occurrence: BR)
  Receive Date: 20170330
  Receipt Date: 20170406
  Transmission Date: 20170830
  Serious: Yes (Hospitalization, Other)
  Sender: FDA-Public Use
  Company Number: BR-PFIZER INC-2017129477

PATIENT
  Age: 75 Year
  Sex: Female

DRUGS (14)
  1. LATANOPROST. [Suspect]
     Active Substance: LATANOPROST
     Indication: GLAUCOMA
     Dosage: 1 DROP IN EACH EYE AT NIGHT
     Route: 047
  2. AAS [Concomitant]
     Active Substance: ASPIRIN
     Dosage: UNK
     Dates: start: 2011
  3. LOSARTAN. [Concomitant]
     Active Substance: LOSARTAN
     Dosage: 2 DF, 1 TABLET IN THE MORNING AND 1 TABLET AT NIGHT
  4. OFTANEX [Concomitant]
     Dosage: UNK
  5. OSCAL 500+D [Concomitant]
     Dosage: UNK
     Dates: start: 201611
  6. AVAMYS [Concomitant]
     Active Substance: FLUTICASONE FUROATE
     Dosage: 27.5 MG, 1X/DAY
     Dates: start: 201702
  7. XALATAN [Suspect]
     Active Substance: LATANOPROST
     Indication: GLAUCOMA
     Dosage: 1 DROP IN EACH EYE AT NIGHT
     Route: 047
  8. AEROLIN [Concomitant]
     Active Substance: ALBUTEROL
     Dosage: UNK UNK, AS NEEDED
  9. NOVALGINA [Concomitant]
     Active Substance: METAMIZOLE SODIUM
     Dosage: 1 DF, UNK
  10. VITAMINS WITH MINERALS [Concomitant]
     Active Substance: MINERALS\VITAMINS
  11. FORMAX /00396102/ [Concomitant]
     Dosage: UNK
  12. RELVAR ELLIPTA [Concomitant]
     Active Substance: FLUTICASONE FUROATE\VILANTEROL TRIFENATATE
     Dosage: UNK UNK, 1 DOSE EVERY 12 HOURS
     Dates: start: 201702
  13. TRAMAL [Concomitant]
     Active Substance: TRAMADOL
  14. RIVOTRIL [Concomitant]
     Active Substance: CLONAZEPAM
     Indication: SLEEP DISORDER
     Dosage: 4 MG, DAILY

REACTIONS (5)
  - Chronic obstructive pulmonary disease [Not Recovered/Not Resolved]
  - Lung disorder [Not Recovered/Not Resolved]
  - Vein disorder [Recovered/Resolved]
  - Incorrect dose administered [Recovered/Resolved]
  - Ulcer [Not Recovered/Not Resolved]
